FAERS Safety Report 6837840-5 (Version None)
Quarter: 2010Q3

REPORT INFORMATION
  Report Type: 
  Country: None (occurrence: None)
  Receive Date: 20100713
  Receipt Date: 20070523
  Transmission Date: 20110219
  Serious: No
  Sender: FDA-Public Use
  Company Number: US-PFIZER INC-2007043045

PATIENT
  Sex: Female
  Weight: 52.2 kg

DRUGS (6)
  1. CHANTIX [Suspect]
     Indication: SMOKING CESSATION THERAPY
     Dates: start: 20070519
  2. ALLEGRA D 24 HOUR [Concomitant]
     Indication: ASTHMA
  3. GUAIFENESIN [Concomitant]
     Indication: ASTHMA
  4. ADVAIR DISKUS 100/50 [Concomitant]
     Indication: ASTHMA
  5. COMBIVENT [Concomitant]
     Indication: ASTHMA
  6. MULTI-VITAMINS [Concomitant]

REACTIONS (2)
  - DIARRHOEA [None]
  - NAUSEA [None]
